FAERS Safety Report 10639143 (Version 1)
Quarter: 2014Q4

REPORT INFORMATION
  Report Type: Spontaneous
  Country: US (occurrence: US)
  Receive Date: 20141208
  Receipt Date: 20141208
  Transmission Date: 20150529
  Serious: No
  Sender: FDA-Public Use
  Company Number: US-BAUSCH-SYM-2014-22467

PATIENT
  Sex: Female

DRUGS (4)
  1. CARAC [Suspect]
     Active Substance: FLUOROURACIL
     Route: 061
     Dates: start: 201404, end: 201405
  2. CARAC [Suspect]
     Active Substance: FLUOROURACIL
     Indication: SOLAR LENTIGO
     Route: 061
     Dates: start: 2012
  3. ESTROGEN [Concomitant]
     Active Substance: ESTRONE\SUS SCROFA OVARY
     Indication: PRODUCT USED FOR UNKNOWN INDICATION
  4. PROGESTERONE. [Concomitant]
     Active Substance: PROGESTERONE
     Indication: PRODUCT USED FOR UNKNOWN INDICATION

REACTIONS (2)
  - Application site dryness [Recovered/Resolved]
  - Application site erythema [Recovered/Resolved]
